FAERS Safety Report 24036580 (Version 1)
Quarter: 2024Q2

REPORT INFORMATION
  Report Type: Spontaneous
  Country: US (occurrence: None)
  Receive Date: 20240630
  Receipt Date: 20240630
  Transmission Date: 20240716
  Serious: Yes (Hospitalization, Disabling)
  Sender: FDA-Public Use
  Company Number: None

PATIENT
  Age: 20 Year
  Sex: Male
  Weight: 84.15 kg

DRUGS (2)
  1. INVEGA SUSTENNA [Suspect]
     Active Substance: PALIPERIDONE PALMITATE
     Indication: Bipolar I disorder
     Route: 030
     Dates: start: 20240601, end: 20240601
  2. SEROQUEL [Suspect]
     Active Substance: QUETIAPINE FUMARATE

REACTIONS (8)
  - Drug interaction [None]
  - Apathy [None]
  - Disturbance in attention [None]
  - Nervous system disorder [None]
  - Appetite disorder [None]
  - Poverty of speech [None]
  - Aphantasia [None]
  - Libido disorder [None]

NARRATIVE: CASE EVENT DATE: 20240601
